FAERS Safety Report 22182133 (Version 1)
Quarter: 2023Q2

REPORT INFORMATION
  Report Type: Spontaneous
  Country: FR (occurrence: FR)
  Receive Date: 20230406
  Receipt Date: 20230406
  Transmission Date: 20230721
  Serious: Yes (Hospitalization, Other)
  Sender: FDA-Public Use
  Company Number: None

PATIENT

DRUGS (3)
  1. BUPRENORPHINE [Suspect]
     Active Substance: BUPRENORPHINE
     Indication: Product used for unknown indication
     Dosage: UNK
     Route: 065
  2. DIAZEPAM [Suspect]
     Active Substance: DIAZEPAM
     Indication: Product used for unknown indication
     Dosage: UNK
     Route: 065
  3. SKENAN [Suspect]
     Active Substance: MORPHINE SULFATE
     Indication: Product used for unknown indication
     Dosage: UNK
     Route: 065

REACTIONS (9)
  - Acute respiratory distress syndrome [Unknown]
  - Pulmonary embolism [Unknown]
  - Acute respiratory failure [Unknown]
  - Rhabdomyolysis [Unknown]
  - Hypothermia [Unknown]
  - Coma [Recovering/Resolving]
  - Miosis [Unknown]
  - Hypotension [Unknown]
  - Drug abuse [Unknown]
